FAERS Safety Report 6443893-9 (Version None)
Quarter: 2009Q4

REPORT INFORMATION
  Report Type: 
  Country: None (occurrence: None)
  Receive Date: 20091117
  Receipt Date: 20091104
  Transmission Date: 20100525
  Serious: Yes (Other)
  Sender: FDA-Public Use
  Company Number: JP-GENENTECH-294235

PATIENT
  Sex: Male

DRUGS (5)
  1. LUCENTIS [Suspect]
     Indication: MACULAR DEGENERATION
     Dosage: 0.05 ML, UNK
     Route: 031
     Dates: start: 20090624
  2. LUCENTIS [Suspect]
     Dosage: 0.05 ML, UNK
     Dates: start: 20090722
  3. LUCENTIS [Suspect]
     Dosage: 0.05 ML, UNK
     Dates: start: 20090827
  4. AZUNOL [Concomitant]
     Indication: DRUG USE FOR UNKNOWN INDICATION
  5. ISODINE [Concomitant]
     Indication: DRUG USE FOR UNKNOWN INDICATION

REACTIONS (1)
  - RETINAL HAEMORRHAGE [None]
